FAERS Safety Report 7495135-3 (Version None)
Quarter: 2011Q2

REPORT INFORMATION
  Report Type: 
  Country: None (occurrence: None)
  Receive Date: 20110520
  Receipt Date: 20110509
  Transmission Date: 20111010
  Serious: Yes (Other)
  Sender: FDA-Public Use
  Company Number: US-WATSON-2011-06781

PATIENT
  Age: 38 Year
  Sex: Female

DRUGS (2)
  1. PERCOCET [Suspect]
     Indication: PAIN
     Dosage: 7.5/500, 4 TAB/DAY
  2. MORPHINE SULFATE [Suspect]
     Indication: PAIN
     Dosage: 30 MG, PRN X 12 MONTHS

REACTIONS (1)
  - SLEEP APNOEA SYNDROME [None]
